FAERS Safety Report 9166395 (Version 2)
Quarter: 2013Q2

REPORT INFORMATION
  Report Type: Spontaneous
  Country: IT (occurrence: IT)
  Receive Date: 20130315
  Receipt Date: 20130401
  Transmission Date: 20140414
  Serious: Yes (Hospitalization)
  Sender: FDA-Public Use
  Company Number: PHHY2013IT025012

PATIENT
  Sex: Male

DRUGS (9)
  1. TOLEP [Suspect]
     Dosage: 600 MG, DAILY
     Route: 048
     Dates: start: 20080117, end: 20130202
  2. DINAPRES [Suspect]
     Dosage: 2 DF, DAILY
     Route: 048
     Dates: start: 20060101, end: 20130202
  3. ACETYLCYSTEINE [Concomitant]
     Dosage: UNK UKN, UNK
     Dates: start: 20130128, end: 20130201
  4. ACETYLSALICYLIC ACID [Concomitant]
     Dosage: 160 MG, UNK
     Route: 048
  5. HUMALOG [Concomitant]
     Dosage: 44 DF, UNK
     Dates: start: 2008
  6. TIMECEF [Concomitant]
     Dosage: 2 G, UNK
     Route: 030
     Dates: start: 20130128, end: 20130201
  7. THEO-DUR [Concomitant]
     Dosage: 600 MG, UNK
     Dates: start: 20130128, end: 20130201
  8. GARDENALE [Concomitant]
     Dosage: 100 MG, UNK
     Route: 048
     Dates: start: 20080117, end: 20130204
  9. HUMULIN [Concomitant]
     Dosage: 14 DF, UNK
     Dates: start: 2008

REACTIONS (3)
  - Hypokalaemia [Recovered/Resolved]
  - Hyponatraemia [Recovered/Resolved]
  - Tremor [Recovered/Resolved]
